FAERS Safety Report 8849260 (Version 2)
Quarter: 2013Q1

REPORT INFORMATION
  Report Type: Spontaneous
  Country: US (occurrence: US)
  Receive Date: 20121019
  Receipt Date: 20130205
  Transmission Date: 20140127
  Serious: Yes (Hospitalization)
  Sender: FDA-Public Use
  Company Number: US-BAYER-2012-108245

PATIENT
  Age: 24 Year
  Sex: Female

DRUGS (14)
  1. YAZ [Suspect]
     Indication: CONTRACEPTION
     Dosage: UNK
     Dates: start: 200705, end: 200807
  2. YAZ [Suspect]
     Indication: OVARIAN CYST
     Dosage: UNK
     Dates: start: 200810, end: 200811
  3. YAZ [Suspect]
     Indication: HIRSUTISM
     Dosage: UNK
     Dates: start: 200907, end: 201006
  4. OCELLA [Suspect]
     Indication: CONTRACEPTION
     Dosage: UNK
     Dates: start: 200903, end: 200907
  5. EFFEXOR XR [Concomitant]
  6. SUMATRIPTAN [Concomitant]
  7. LEVOTHYROXINE [Concomitant]
  8. ZOMIG [Concomitant]
  9. OMEPRAZOLE [Concomitant]
  10. METFORMIN [Concomitant]
  11. OMEGA 3 FISH [Concomitant]
  12. MULTIVITAMIN [Concomitant]
  13. ZANTAC [Concomitant]
  14. AMOXICILLIN [Concomitant]

REACTIONS (7)
  - Cholecystitis [None]
  - Hepatobiliary scan abnormal [None]
  - Injury [None]
  - Pain [None]
  - Abdominal pain upper [None]
  - Nausea [None]
  - Vomiting [None]
